FAERS Safety Report 5744754-0 (Version None)
Quarter: 2008Q2

REPORT INFORMATION
  Report Type: 
  Country: None (occurrence: None)
  Receive Date: 20080520
  Receipt Date: 20080508
  Transmission Date: 20081010
  Serious: Yes (Death, Hospitalization, Other)
  Sender: FDA-Public Use
  Company Number: US-PFIZER INC-2008030114

PATIENT
  Sex: Female
  Weight: 70.8 kg

DRUGS (22)
  1. NEURONTIN [Suspect]
     Indication: DIABETIC NEUROPATHY
     Route: 048
  2. NEURONTIN [Suspect]
     Indication: PAIN
  3. OPIUM TINCTURE [Suspect]
     Indication: DIARRHOEA
     Route: 048
  4. MORPHINE SULFATE [Suspect]
     Indication: PAIN
     Route: 048
  5. MORPHINE SULFATE [Suspect]
     Route: 048
  6. CARBAMAZEPINE [Concomitant]
     Route: 048
     Dates: start: 20080123
  7. LAC-HYDRIN [Concomitant]
     Route: 061
  8. REGLAN [Concomitant]
     Dosage: TEXT:EVERY 6 HOURS
  9. LORTAB [Concomitant]
     Dosage: TEXT:10/500 MILLIGRAM-FREQ:EVERY 3 HOURS AS NEEDED
     Route: 048
  10. LEXAPRO [Concomitant]
  11. TRICOR [Concomitant]
     Route: 048
  12. ACTOS [Concomitant]
  13. INSULIN DETEMIR [Concomitant]
     Dosage: TEXT:40 UNITS
     Route: 058
  14. LOMOTIL [Concomitant]
     Indication: DIARRHOEA
  15. LOPERAMIDE HCL [Concomitant]
     Indication: DIARRHOEA
  16. ROZEREM [Concomitant]
     Indication: INSOMNIA
  17. CYMBALTA [Concomitant]
     Dosage: DAILY DOSE:90MG
     Route: 048
  18. NOVOLOG [Concomitant]
     Indication: DIABETES MELLITUS
     Dosage: TEXT:10 UNITS-FREQ:3 TIMES A DAY BEFORE MEALS
     Route: 058
  19. LIPITOR [Concomitant]
     Route: 048
  20. SEROQUEL [Concomitant]
     Route: 048
  21. ANUSOL [Concomitant]
     Route: 061
  22. TRAZODONE HCL [Concomitant]
     Route: 048

REACTIONS (12)
  - COORDINATION ABNORMAL [None]
  - DIABETES MELLITUS [None]
  - ELECTROMECHANICAL DISSOCIATION [None]
  - HYPERKALAEMIA [None]
  - NEUROPATHY PERIPHERAL [None]
  - PAIN [None]
  - RECTAL HAEMORRHAGE [None]
  - RENAL FAILURE ACUTE [None]
  - RESPIRATORY FAILURE [None]
  - TOOTH INFECTION [None]
  - TRANSAMINASES INCREASED [None]
  - WEIGHT INCREASED [None]
